FAERS Safety Report 25644717 (Version 2)
Quarter: 2025Q3

REPORT INFORMATION
  Report Type: Spontaneous
  Country: AU (occurrence: AU)
  Receive Date: 20250805
  Receipt Date: 20250828
  Transmission Date: 20251020
  Serious: Yes (Hospitalization, Other)
  Sender: ELI LILLY AND COMPANY
  Company Number: AU-ELI_LILLY_AND_COMPANY-AU202507023648

PATIENT
  Age: 35 Year
  Sex: Female
  Weight: 81 kg

DRUGS (1)
  1. MOUNJARO [Suspect]
     Active Substance: TIRZEPATIDE
     Indication: Product used for unknown indication
     Dosage: 2.5 MG, WEEKLY (1/W)
     Route: 058
     Dates: start: 20250520, end: 20250603

REACTIONS (11)
  - Gastritis [Recovering/Resolving]
  - Pyrexia [Recovering/Resolving]
  - Tachycardia [Unknown]
  - Pain [Unknown]
  - White blood cell count increased [Recovering/Resolving]
  - Blood lactic acid increased [Unknown]
  - Dehydration [Recovering/Resolving]
  - Venous angioma of brain [Unknown]
  - Aphasia [Recovering/Resolving]
  - Disorientation [Unknown]
  - Hypophagia [Recovering/Resolving]

NARRATIVE: CASE EVENT DATE: 20250601
